FAERS Safety Report 9928506 (Version 1)
Quarter: 2014Q1

REPORT INFORMATION
  Report Type: Spontaneous
  Country: US (occurrence: None)
  Receive Date: 20140224
  Receipt Date: 20140224
  Transmission Date: 20141002
  Serious: Yes (Death)
  Sender: FDA-Public Use
  Company Number: NL01PV14.35219

PATIENT
  Age: 59 Year
  Sex: Female

DRUGS (5)
  1. ZOLPIDEM TABLETS [Suspect]
     Route: 048
  2. DULOXETINE (DULOXETINE) (DULOXETINE) [Suspect]
     Route: 048
  3. QUETIAPINE (QUETIAPINE) [Suspect]
     Route: 048
  4. OXYBUTYNIN (OXYBUTYNIN) [Suspect]
     Route: 048
  5. DIAZEPAM (DIAZEPAM) [Suspect]
     Route: 048

REACTIONS (4)
  - Completed suicide [None]
  - Respiratory arrest [None]
  - Cardiac arrest [None]
  - Exposure via ingestion [None]
